FAERS Safety Report 5347447-7 (Version None)
Quarter: 2007Q2

REPORT INFORMATION
  Report Type: 
  Country: None (occurrence: None)
  Receive Date: 20070604
  Receipt Date: 20070604
  Transmission Date: 20071010
  Serious: Yes (Life-Threatening, Other)
  Sender: FDA-Public Use
  Company Number: None

PATIENT
  Age: 57 Year
  Sex: Female
  Weight: 90.7194 kg

DRUGS (1)
  1. ETODOLAC [Suspect]
     Indication: ARTHRITIS
     Dosage: 1 TABLET TWICE DAILY PO
     Route: 048
     Dates: start: 20070516, end: 20070517

REACTIONS (5)
  - ANAPHYLACTIC REACTION [None]
  - RASH ERYTHEMATOUS [None]
  - RASH GENERALISED [None]
  - RASH PRURITIC [None]
  - SWELLING FACE [None]
